FAERS Safety Report 10152401 (Version 1)
Quarter: 2014Q2

REPORT INFORMATION
  Report Type: Spontaneous
  Country: US (occurrence: US)
  Receive Date: 20140505
  Receipt Date: 20140505
  Transmission Date: 20141212
  Serious: Yes (Hospitalization)
  Sender: FDA-Public Use
  Company Number: US-MALLINCKRODT-T201401956

PATIENT
  Age: 40 Year
  Sex: Male

DRUGS (1)
  1. GABLOFEN [Suspect]
     Indication: MUSCLE SPASTICITY
     Dosage: 1395 MCG/DAY
     Route: 037

REACTIONS (5)
  - Device connection issue [Recovered/Resolved]
  - Cardiogenic shock [Unknown]
  - Loss of consciousness [Not Recovered/Not Resolved]
  - Mental status changes [Unknown]
  - Underdose [Unknown]
